FAERS Safety Report 13327963 (Version 2)
Quarter: 2017Q1

REPORT INFORMATION
  Report Type: Spontaneous
  Country: JP (occurrence: JP)
  Receive Date: 20170313
  Receipt Date: 20170329
  Transmission Date: 20170428
  Serious: Yes (Other)
  Sender: FDA-Public Use
  Company Number: JP-HORIZON-BUP-0023-2017

PATIENT
  Age: 5 Year
  Sex: Female

DRUGS (5)
  1. ARGININE [Concomitant]
     Active Substance: ARGININE
     Indication: AMMONIA INCREASED
     Route: 042
  2. SODIUM BENZOATE [Concomitant]
     Active Substance: SODIUM BENZOATE
     Indication: ORNITHINE TRANSCARBAMOYLASE DEFICIENCY
     Route: 048
  3. CARNITINE [Concomitant]
     Active Substance: CARNITINE
     Indication: ORNITHINE TRANSCARBAMOYLASE DEFICIENCY
     Route: 048
  4. ARGININE [Concomitant]
     Active Substance: ARGININE
     Indication: ORNITHINE TRANSCARBAMOYLASE DEFICIENCY
     Route: 048
  5. BUPHENYL [Suspect]
     Active Substance: SODIUM PHENYLBUTYRATE
     Indication: ORNITHINE TRANSCARBAMOYLASE DEFICIENCY
     Route: 048

REACTIONS (2)
  - Alanine aminotransferase increased [Recovered/Resolved]
  - Hyperammonaemia [Recovered/Resolved]
